FAERS Safety Report 11511931 (Version 3)
Quarter: 2016Q1

REPORT INFORMATION
  Report Type: Spontaneous
  Country: CA (occurrence: CA)
  Receive Date: 20150916
  Receipt Date: 20160222
  Transmission Date: 20160525
  Serious: Yes (Hospitalization, Other)
  Sender: FDA-Public Use
  Company Number: CA-PFIZER INC-2015283530

PATIENT
  Age: 42 Year
  Sex: Female

DRUGS (1)
  1. XALKORI [Suspect]
     Active Substance: CRIZOTINIB
     Indication: NON-SMALL CELL LUNG CANCER
     Dosage: 250 MG, 2X/DAY
     Route: 048
     Dates: start: 20130514, end: 201601

REACTIONS (10)
  - Leukocytosis [Recovered/Resolved]
  - Perinephric collection [Recovered/Resolved]
  - Non-small cell lung cancer [Not Recovered/Not Resolved]
  - Renal abscess [Recovered/Resolved]
  - Acute kidney injury [Unknown]
  - Anaemia [Unknown]
  - Blood creatinine increased [Unknown]
  - Platelet count increased [Unknown]
  - Disease progression [Not Recovered/Not Resolved]
  - Nausea [Unknown]

NARRATIVE: CASE EVENT DATE: 2015
